FAERS Safety Report 8605367-6 (Version None)
Quarter: 2012Q3

REPORT INFORMATION
  Report Type: 
  Country: None (occurrence: None)
  Receive Date: 20120820
  Receipt Date: 20120622
  Transmission Date: 20120928
  Serious: Yes (Other)
  Sender: FDA-Public Use
  Company Number: US-009507513-2012SP029420

PATIENT

DRUGS (2)
  1. COPPERTONE WATER BABIES LOTION SPF-50 [Suspect]
     Indication: MEDICAL OBSERVATION
  2. COPPERTONE WATER BABIES LOTION SPF-50 [Suspect]
     Indication: PROPHYLAXIS AGAINST SOLAR RADIATION
     Dosage: 5 DF, UNKNOWN
     Route: 061
     Dates: start: 20120521, end: 20120522

REACTIONS (3)
  - RASH [None]
  - HYPERSENSITIVITY [None]
  - BURNING SENSATION [None]
